FAERS Safety Report 8317590-9 (Version None)
Quarter: 2012Q2

REPORT INFORMATION
  Report Type: 
  Country: None (occurrence: None)
  Receive Date: 20120427
  Receipt Date: 20110325
  Transmission Date: 20120825
  Serious: No
  Sender: FDA-Public Use
  Company Number: US-GLAXOSMITHKLINE-A0920084A

PATIENT
  Age: 38 Year
  Sex: Female

DRUGS (2)
  1. PROGESTERONE [Concomitant]
  2. ZOFRAN [Suspect]
     Indication: MULTIPLE SCLEROSIS
     Dosage: 8MG TWICE PER DAY
     Route: 048
     Dates: start: 20010101

REACTIONS (1)
  - THERAPEUTIC RESPONSE UNEXPECTED [None]
